FAERS Safety Report 5872813-0 (Version None)
Quarter: 2008Q3

REPORT INFORMATION
  Report Type: 
  Country: None (occurrence: None)
  Receive Date: 20080903
  Receipt Date: 20080819
  Transmission Date: 20090109
  Serious: Yes (Hospitalization)
  Sender: FDA-Public Use
  Company Number: A-NJ2008-21316

PATIENT
  Age: 84 Year
  Sex: Female

DRUGS (14)
  1. TRACLEER [Suspect]
     Indication: PULMONARY ARTERIAL HYPERTENSION
     Dosage: 125 MG, BID, ORAL, 62.5 MG, BID, ORAL
     Route: 048
     Dates: start: 20080601, end: 20080101
  2. TRACLEER [Suspect]
     Indication: PULMONARY ARTERIAL HYPERTENSION
     Dosage: 125 MG, BID, ORAL, 62.5 MG, BID, ORAL
     Route: 048
     Dates: start: 20080101, end: 20080711
  3. ADVAIR DISKUS 100/50 [Concomitant]
  4. BENADRYL [Concomitant]
  5. COMPAZINE (PROCHLORPERAZINE MALEATE) [Concomitant]
  6. ESTRADIOL [Concomitant]
  7. GLIPZIDE (GLIPIZIDE) [Concomitant]
  8. LASIX [Concomitant]
  9. PROPRANOLOL [Concomitant]
  10. QUINAPRIL HCL [Concomitant]
  11. RANITIDINE HCL [Concomitant]
  12. SINGULAIR [Concomitant]
  13. SYNTHROID [Concomitant]
  14. SPIRIVA [Concomitant]

REACTIONS (8)
  - ABDOMINAL PAIN [None]
  - ALANINE AMINOTRANSFERASE INCREASED [None]
  - ASPARTATE AMINOTRANSFERASE INCREASED [None]
  - BLOOD ALKALINE PHOSPHATASE INCREASED [None]
  - DEHYDRATION [None]
  - DIARRHOEA [None]
  - EOSINOPHILIA [None]
  - LIVER FUNCTION TEST ABNORMAL [None]
